FAERS Safety Report 25940452 (Version 1)
Quarter: 2025Q4

REPORT INFORMATION
  Report Type: Report from Study
  Country: US (occurrence: US)
  Receive Date: 20251020
  Receipt Date: 20251020
  Transmission Date: 20260117
  Serious: Yes (Other)
  Sender: ACADIA PHARMACEUTICALS
  Company Number: US-ACADIA PHARMACEUTICALS INC.-ACA-2025-PIM-011303

PATIENT
  Age: 78 Year
  Sex: Male

DRUGS (10)
  1. NUPLAZID [Suspect]
     Active Substance: PIMAVANSERIN TARTRATE
     Indication: Parkinson^s disease
     Dosage: 10 MILLIGRAM, QD
     Route: 048
     Dates: start: 20250815, end: 20250905
  2. AMANTADINE [Concomitant]
     Active Substance: AMANTADINE
  3. DOCUSATE SODIUM [Concomitant]
     Active Substance: DOCUSATE SODIUM
  4. MATAS MULTIVITAMIN 50+ [Concomitant]
  5. PRAMIPEXOLE [Concomitant]
     Active Substance: PRAMIPEXOLE
  6. RASAGILINE [Concomitant]
     Active Substance: RASAGILINE
  7. RYTARY [Concomitant]
     Active Substance: CARBIDOPA\LEVODOPA
  8. SEROQUEL [Concomitant]
     Active Substance: QUETIAPINE FUMARATE
  9. SIMVASTATIN [Concomitant]
     Active Substance: SIMVASTATIN
  10. NOURIANZ [Concomitant]
     Active Substance: ISTRADEFYLLINE

REACTIONS (4)
  - Hallucination [Not Recovered/Not Resolved]
  - Distractibility [Not Recovered/Not Resolved]
  - Aggression [Not Recovered/Not Resolved]
  - Underdose [Not Recovered/Not Resolved]

NARRATIVE: CASE EVENT DATE: 20250905
